FAERS Safety Report 9471566 (Version 1)
Quarter: 2013Q3

REPORT INFORMATION
  Report Type: Spontaneous
  Country: US (occurrence: US)
  Receive Date: 20130822
  Receipt Date: 20130822
  Transmission Date: 20140515
  Serious: No
  Sender: FDA-Public Use
  Company Number: US-TEVA-428080USA

PATIENT
  Age: 43 Year
  Sex: Female
  Weight: 113.5 kg

DRUGS (2)
  1. PARAGARD 380A [Suspect]
     Indication: CONTRACEPTION
     Route: 015
     Dates: start: 20120917, end: 20121114
  2. MICROBID [Concomitant]

REACTIONS (1)
  - Device expulsion [Recovered/Resolved with Sequelae]
